FAERS Safety Report 12158129 (Version 1)
Quarter: 2016Q1

REPORT INFORMATION
  Report Type: Spontaneous
  Country: US (occurrence: US)
  Receive Date: 20160308
  Receipt Date: 20160308
  Transmission Date: 20160526
  Serious: No
  Sender: FDA-Public Use
  Company Number: US-JNJFOC-20141215278

PATIENT
  Age: 83 Year
  Sex: Male

DRUGS (12)
  1. TAMSULOSIN [Concomitant]
     Active Substance: TAMSULOSIN
  2. LOVASTATIN. [Concomitant]
     Active Substance: LOVASTATIN
  3. IRON [Concomitant]
     Active Substance: IRON
     Dosage: MONDAYS, WEDNESDAYS AND FRIDAYS
  4. FUROSEMIDE. [Concomitant]
     Active Substance: FUROSEMIDE
  5. IMBRUVICA [Suspect]
     Active Substance: IBRUTINIB
     Indication: MANTLE CELL LYMPHOMA
     Route: 048
     Dates: start: 20140723
  6. HYDROCODONE [Concomitant]
     Active Substance: HYDROCODONE
  7. LORAZEPAM. [Concomitant]
     Active Substance: LORAZEPAM
  8. STOOL SOFTENER [Concomitant]
     Active Substance: DOCUSATE CALCIUM
  9. KLOR-CON [Concomitant]
     Active Substance: POTASSIUM CHLORIDE
  10. VITAMIN D [Concomitant]
     Active Substance: CHOLECALCIFEROL
  11. FINASTERIDE. [Concomitant]
     Active Substance: FINASTERIDE
  12. COQ10 [Concomitant]
     Active Substance: UBIDECARENONE

REACTIONS (1)
  - Compression fracture [Not Recovered/Not Resolved]

NARRATIVE: CASE EVENT DATE: 201411
